FAERS Safety Report 21180505 (Version 4)
Quarter: 2024Q2

REPORT INFORMATION
  Report Type: Spontaneous
  Country: US (occurrence: US)
  Receive Date: 20220806
  Receipt Date: 20240406
  Transmission Date: 20240715
  Serious: No
  Sender: FDA-Public Use
  Company Number: US-SA-SAC20220727001032

PATIENT
  Age: 54 Year
  Sex: Female

DRUGS (1)
  1. DUPIXENT [Suspect]
     Active Substance: DUPILUMAB
     Indication: Dermatitis atopic
     Dosage: 300 MG, QOW
     Route: 058
     Dates: start: 20211101

REACTIONS (9)
  - Weight increased [Unknown]
  - Injection site mass [Unknown]
  - Eczema [Unknown]
  - Rash erythematous [Unknown]
  - Exfoliative rash [Unknown]
  - Dermatitis [Unknown]
  - Psoriasis [Unknown]
  - Eczema [Unknown]
  - Eosinophil count [Unknown]
